FAERS Safety Report 10217937 (Version 1)
Quarter: 2014Q2

REPORT INFORMATION
  Report Type: Spontaneous
  Country: US (occurrence: US)
  Receive Date: 20140605
  Receipt Date: 20140605
  Transmission Date: 20141212
  Serious: Yes (Life-Threatening, Hospitalization)
  Sender: FDA-Public Use
  Company Number: US-BIOGENIDEC-2014BI051244

PATIENT
  Sex: Female

DRUGS (3)
  1. TYSABRI [Suspect]
     Indication: MULTIPLE SCLEROSIS
     Route: 042
     Dates: start: 20070425, end: 20130115
  2. AVONEX [Concomitant]
     Indication: MULTIPLE SCLEROSIS
  3. OXYCONTIN [Concomitant]

REACTIONS (6)
  - Loss of consciousness [Recovered/Resolved]
  - Cardiac arrest [Unknown]
  - Fall [Recovered/Resolved]
  - Wrist fracture [Recovered/Resolved]
  - Psychotic disorder [Recovered/Resolved]
  - Dementia [Recovered/Resolved with Sequelae]
